FAERS Safety Report 16659950 (Version 2)
Quarter: 2019Q3

REPORT INFORMATION
  Report Type: Spontaneous
  Country: FR (occurrence: FR)
  Receive Date: 20190802
  Receipt Date: 20190909
  Transmission Date: 20191004
  Serious: Yes (Life-Threatening)
  Sender: FDA-Public Use
  Company Number: PHHY2019FR178380

PATIENT
  Age: 85 Year
  Sex: Male
  Weight: 75 kg

DRUGS (11)
  1. BISOPROLOL [Suspect]
     Active Substance: BISOPROLOL
     Indication: POISONING DELIBERATE
     Dosage: 20 MG, UNK (ONCE, AMOUNT QUANTITY SUPPOSEDLY INGESTED: 4 TABLETS OF 5 MG)
     Route: 048
     Dates: start: 20190701, end: 20190701
  2. MELATONINE [Suspect]
     Active Substance: MELATONIN
     Indication: POISONING DELIBERATE
     Dosage: 48 MG, UNK (ONCE, AMOUNT INGESTED SUPPOSED: 4 X 12 MG)
     Route: 048
     Dates: start: 20190701, end: 20190701
  3. CORDARONE [Suspect]
     Active Substance: AMIODARONE HYDROCHLORIDE
     Indication: POISONING DELIBERATE
     Dosage: 800 MG, UNK, ONCE, QUANTITY SUPPOSEDLY INGESTED: 4 CP OF 200 MG (TOTAL)
     Route: 048
     Dates: start: 20190701, end: 20190701
  4. LEVOTHYROX [Suspect]
     Active Substance: LEVOTHYROXINE
     Indication: POISONING DELIBERATE
     Dosage: 500 UG, QD (AMOUNT INGESTED SUPPOSED: 4 X 125 MICROGRAMS)
     Route: 048
  5. TAHOR [Suspect]
     Active Substance: ATORVASTATIN CALCIUM
     Indication: POISONING DELIBERATE
     Dosage: 40 MG, UNK
     Route: 048
     Dates: start: 20190701, end: 20190701
  6. INSPRA [Suspect]
     Active Substance: EPLERENONE
     Indication: POISONING DELIBERATE
     Dosage: 100 MG, UNK (ONCE, AMOUNT INGESTED SUPPOSED: 4 TABLETS)
     Route: 048
     Dates: start: 20190701, end: 20190701
  7. IMOVANE [Suspect]
     Active Substance: ZOPICLONE
     Indication: POISONING DELIBERATE
     Dosage: 30 MG, UNK (ONCE, QUANTITY SUPPOSEDLY INGESTED: 4 X 7,5 MG)
     Route: 048
     Dates: start: 20190701, end: 20190701
  8. KARDEGIC [Suspect]
     Active Substance: ASPIRIN DL-LYSINE
     Indication: POISONING DELIBERATE
     Dosage: 300 MG, UNK (ONCE, AMOUNT INGESTED SUPPOSED: 4 BAGS OF 75 MG)
     Route: 048
     Dates: start: 20190701, end: 20190701
  9. MIANSERIN HYDROCHLORIDE [Suspect]
     Active Substance: MIANSERIN HYDROCHLORIDE
     Indication: POISONING DELIBERATE
     Dosage: 120 MG, UNK (ONCE, AMOUNT INGESTED SUPPOSED: 4 TABLETS OF 30 MG)
     Route: 048
     Dates: start: 20190701
  10. INEXIUM [Suspect]
     Active Substance: ESOMEPRAZOLE
     Indication: POISONING DELIBERATE
     Dosage: 80 MG, UNK (ONCE, QUANTITY SUPPOSEDLY INGESTED: 4 TABLETS OF 20 MG)
     Route: 048
     Dates: start: 20190701, end: 20190701
  11. RAMIPRIL. [Suspect]
     Active Substance: RAMIPRIL
     Indication: POISONING DELIBERATE
     Dosage: 20 MG, QD
     Route: 048
     Dates: start: 20190701

REACTIONS (5)
  - Bradycardia [Recovered/Resolved]
  - Overdose [Unknown]
  - Poisoning deliberate [Recovered/Resolved]
  - Hypoglycaemia [Recovered/Resolved]
  - Cardiogenic shock [Recovered/Resolved]

NARRATIVE: CASE EVENT DATE: 20190701
